FAERS Safety Report 9323933 (Version 1)
Quarter: 2013Q2

REPORT INFORMATION
  Report Type: Spontaneous
  Country: US (occurrence: US)
  Receive Date: 20130603
  Receipt Date: 20130603
  Transmission Date: 20140414
  Serious: No
  Sender: FDA-Public Use
  Company Number: US-PFIZER INC-2013167217

PATIENT
  Sex: Female

DRUGS (2)
  1. EFFEXOR XR [Suspect]
     Dosage: UNK
  2. EFFEXOR [Suspect]
     Dosage: UNK

REACTIONS (6)
  - Cardiac disorder [Unknown]
  - Blood pressure abnormal [Unknown]
  - Sensory disturbance [Unknown]
  - Panic attack [Unknown]
  - Anxiety [Unknown]
  - Fear [Unknown]
